FAERS Safety Report 7197348-7 (Version None)
Quarter: 2010Q4

REPORT INFORMATION
  Report Type: 
  Country: None (occurrence: None)
  Receive Date: 20101203
  Receipt Date: 20101125
  Transmission Date: 20110411
  Serious: Yes (Hospitalization)
  Sender: FDA-Public Use
  Company Number: 2010SP061868

PATIENT
  Age: 56 Year
  Sex: Male

DRUGS (10)
  1. POLARAMINE [Suspect]
     Indication: PRODUCT USED FOR UNKNOWN INDICATION
  2. AERIUS (DESLORATADINE /01398501/) [Suspect]
     Indication: RASH
     Dosage: PO
     Route: 048
  3. FLUOROURACIL [Suspect]
     Indication: HYPOPHARYNGEAL CANCER
     Dosage: 2000 MG
     Dates: start: 20100823
  4. CISPLATIN [Suspect]
     Indication: HYPOPHARYNGEAL CANCER
     Dosage: 200 MG;QD'
     Dates: start: 20100823
  5. ERBITUX [Suspect]
     Indication: HYPOPHARYNGEAL CANCER
     Dosage: 800 MG;QD
     Dates: start: 20100823
  6. ZOPHREN (ONDANSETRON HYDROCHLORIDE /00955302/) [Suspect]
     Indication: PRODUCT USED FOR UNKNOWN INDICATION
  7. EMEND [Suspect]
     Indication: PRODUCT USED FOR UNKNOWN INDICATION
  8. SOLU-MEDROL [Suspect]
     Indication: PRODUCT USED FOR UNKNOWN INDICATION
  9. PRIMPERAN TAB [Suspect]
     Indication: PRODUCT USED FOR UNKNOWN INDICATION
  10. CILENGITIDE [Concomitant]

REACTIONS (3)
  - CYTOLYTIC HEPATITIS [None]
  - RASH [None]
  - THROMBOCYTOPENIA [None]
